FAERS Safety Report 5508934-1 (Version None)
Quarter: 2007Q4

REPORT INFORMATION
  Report Type: 
  Country: None (occurrence: None)
  Receive Date: 20071031
  Receipt Date: 20070807
  Transmission Date: 20080405
  Serious: No
  Sender: FDA-Public Use
  Company Number: 2007PV033262

PATIENT
  Age: 56 Year
  Sex: Female

DRUGS (5)
  1. SYMLIN [Suspect]
     Indication: TYPE 2 DIABETES MELLITUS
     Dosage: 60 MCG;BID;SC; 120 MCG;TID;SC
     Route: 058
     Dates: start: 20070803, end: 20070801
  2. SYMLIN [Suspect]
     Indication: TYPE 2 DIABETES MELLITUS
     Dosage: 60 MCG;BID;SC; 120 MCG;TID;SC
     Route: 058
     Dates: start: 20070801
  3. LANTUS [Concomitant]
  4. ROBAXIN [Concomitant]
  5. LANTUS [Concomitant]

REACTIONS (3)
  - ARTHRALGIA [None]
  - DECREASED APPETITE [None]
  - FATIGUE [None]
